FAERS Safety Report 19835094 (Version 2)
Quarter: 2021Q3

REPORT INFORMATION
  Report Type: Report from Study
  Country: FR (occurrence: FR)
  Receive Date: 20210914
  Receipt Date: 20210929
  Transmission Date: 20211014
  Serious: Yes (Hospitalization, Other)
  Sender: FDA-Public Use
  Company Number: FR-BRISTOL-MYERS SQUIBB COMPANY-BMS-2021-090598

PATIENT
  Age: 45 Year
  Sex: Male
  Weight: 39 kg

DRUGS (7)
  1. CISPLATIN. [Suspect]
     Active Substance: CISPLATIN
     Indication: SQUAMOUS CELL CARCINOMA OF HEAD AND NECK
     Dosage: 100 MG/SQ.M, DOSE:154 MG
     Route: 065
     Dates: start: 20210726, end: 20210816
  2. TRAMADOL HYDROCHLORIDE. [Concomitant]
     Active Substance: TRAMADOL HYDROCHLORIDE
     Indication: PRODUCT USED FOR UNKNOWN INDICATION
     Dosage: AS NEEDED
     Route: 065
  3. NIVOLUMAB [Suspect]
     Active Substance: NIVOLUMAB
     Dosage: 360 MILLIGRAM
     Route: 065
     Dates: start: 20210726, end: 20210816
  4. CISPLATIN. [Suspect]
     Active Substance: CISPLATIN
     Dosage: CYCLE 3, DAY 1
     Route: 065
     Dates: start: 20210905
  5. NIVOLUMAB [Suspect]
     Active Substance: NIVOLUMAB
     Dosage: CYCLE 3, DAY 1
     Route: 065
     Dates: start: 20210905
  6. NIVOLUMAB [Suspect]
     Active Substance: NIVOLUMAB
     Indication: SQUAMOUS CELL CARCINOMA OF HEAD AND NECK
     Dosage: 240 MILLIGRAM
     Route: 065
     Dates: start: 20210716
  7. PRIMPERAN [Concomitant]
     Active Substance: METOCLOPRAMIDE HYDROCHLORIDE
     Indication: NAUSEA
     Dosage: AS NEEDED, DAILY
     Route: 065

REACTIONS (5)
  - Renal failure [Not Recovered/Not Resolved]
  - Pneumonia pneumococcal [Recovering/Resolving]
  - Radiation skin injury [Recovering/Resolving]
  - Abdominal pain [Unknown]
  - Duodenitis [Unknown]

NARRATIVE: CASE EVENT DATE: 20210905
